FAERS Safety Report 5511909-X (Version None)
Quarter: 2007Q4

REPORT INFORMATION
  Report Type: 
  Country: None (occurrence: None)
  Receive Date: 20071109
  Receipt Date: 20071030
  Transmission Date: 20080405
  Serious: Yes (Other)
  Sender: FDA-Public Use
  Company Number: GB-PFIZER INC-2007091747

PATIENT
  Age: 84 Year
  Sex: Female

DRUGS (1)
  1. ISTIN [Suspect]
     Indication: HYPERTENSION
     Route: 048

REACTIONS (2)
  - DIALYSIS [None]
  - HEADACHE [None]
